FAERS Safety Report 5374038-4 (Version None)
Quarter: 2007Q2

REPORT INFORMATION
  Report Type: 
  Country: None (occurrence: None)
  Receive Date: 20070627
  Receipt Date: 20070618
  Transmission Date: 20071010
  Serious: Yes (Hospitalization)
  Sender: FDA-Public Use
  Company Number: 163-21880-07040931

PATIENT
  Age: 62 Year
  Sex: Male

DRUGS (8)
  1. REVLIMID [Suspect]
     Indication: MULTIPLE MYELOMA
     Dosage: SEE IMAGE
     Route: 048
     Dates: start: 20061003
  2. REVLIMID [Suspect]
     Indication: MULTIPLE MYELOMA
     Dosage: SEE IMAGE
     Route: 048
     Dates: start: 20061117
  3. ALBUTEROL [Concomitant]
     Route: 055
  4. BACTRIM [Concomitant]
  5. PROTONIX [Concomitant]
  6. PREDNISONE TAB [Concomitant]
  7. DILAUDID [Concomitant]
  8. ADVIL LIQUI-GELS [Concomitant]

REACTIONS (8)
  - ARTHRALGIA [None]
  - CULTURE URINE POSITIVE [None]
  - ORAL INFECTION [None]
  - PLATELET COUNT DECREASED [None]
  - PNEUMONIA PARAINFLUENZAE VIRAL [None]
  - STAPHYLOCOCCAL INFECTION [None]
  - STRESS FRACTURE [None]
  - TIBIA FRACTURE [None]
